FAERS Safety Report 21764148 (Version 9)
Quarter: 2023Q2

REPORT INFORMATION
  Report Type: Report from Study
  Country: DE (occurrence: DE)
  Receive Date: 20221222
  Receipt Date: 20230529
  Transmission Date: 20230722
  Serious: Yes (Hospitalization)
  Sender: FDA-Public Use
  Company Number: DE-TAKEDA-2022TUS085669

PATIENT
  Age: 3 Year
  Sex: Male

DRUGS (4)
  1. IDURSULFASE [Suspect]
     Active Substance: IDURSULFASE
     Indication: Mucopolysaccharidosis II
     Dosage: 12 MILLIGRAM, 1/WEEK
     Route: 050
  2. IDURSULFASE [Suspect]
     Active Substance: IDURSULFASE
     Dosage: 12 MILLIGRAM, 1/WEEK
     Route: 042
  3. IDURSULFASE [Suspect]
     Active Substance: IDURSULFASE
     Dosage: 12 MILLIGRAM, 1/WEEK
     Route: 042
  4. IDURSULFASE [Suspect]
     Active Substance: IDURSULFASE
     Dosage: 12 MILLIGRAM, 1/WEEK
     Route: 042

REACTIONS (10)
  - Carpal tunnel syndrome [Unknown]
  - Febrile infection [Not Recovered/Not Resolved]
  - Bronchitis [Recovering/Resolving]
  - Rhinorrhoea [Recovered/Resolved]
  - Tonsillitis [Recovered/Resolved]
  - Oropharyngeal pain [Recovered/Resolved]
  - Infection [Recovered/Resolved]
  - Cough [Recovered/Resolved]
  - Pyrexia [Recovered/Resolved]
  - Device infusion issue [Recovered/Resolved]

NARRATIVE: CASE EVENT DATE: 20221109
